FAERS Safety Report 14427934 (Version 1)
Quarter: 2018Q1

REPORT INFORMATION
  Report Type: Spontaneous
  Country: US (occurrence: US)
  Receive Date: 20180123
  Receipt Date: 20180123
  Transmission Date: 20180509
  Serious: Yes (Death)
  Sender: FDA-Public Use
  Company Number: US-INSYS THERAPEUTICS, INC-INS201801-000020

PATIENT
  Age: 41 Year
  Sex: Male

DRUGS (6)
  1. COCAINE [Suspect]
     Active Substance: COCAINE
  2. HEROIN [Suspect]
     Active Substance: DIAMORPHINE
  3. DIPHENHYDRAMINE. [Suspect]
     Active Substance: DIPHENHYDRAMINE
  4. CARFENTANIL [Suspect]
     Active Substance: CARFENTANIL
  5. FENTANYL. [Suspect]
     Active Substance: FENTANYL
     Indication: PRODUCT USED FOR UNKNOWN INDICATION
  6. U-47700 [Suspect]
     Active Substance: U-47700

REACTIONS (1)
  - Toxicity to various agents [Fatal]
